FAERS Safety Report 9748255 (Version 1)
Quarter: 2013Q4

REPORT INFORMATION
  Report Type: Spontaneous
  Country: US (occurrence: None)
  Receive Date: 20131206
  Receipt Date: 20131206
  Transmission Date: 20140711
  Serious: Yes (Other)
  Sender: FDA-Public Use
  Company Number: AUR-APL-2013-10119

PATIENT
  Age: 76 Year
  Sex: Female
  Weight: 61.22 kg

DRUGS (4)
  1. LOSARTAN (LOSARTAN) [Suspect]
  2. METOPROLOL (METOPROLOL) [Suspect]
  3. CENTRUM SILVER WOMEN^S 50+ [Suspect]
     Route: 048
     Dates: start: 2005
  4. CITRACAL + D [Suspect]
     Route: 048
     Dates: start: 2005

REACTIONS (5)
  - Flatulence [None]
  - Hypertension [None]
  - Musculoskeletal pain [None]
  - Fatigue [None]
  - Gastrointestinal sounds abnormal [None]
